FAERS Safety Report 14609656 (Version 1)
Quarter: 2018Q1

REPORT INFORMATION
  Report Type: Spontaneous
  Country: US (occurrence: US)
  Receive Date: 20180306
  Receipt Date: 20180306
  Transmission Date: 20180509
  Serious: Yes (Other)
  Sender: FDA-Public Use
  Company Number: None

PATIENT
  Age: 36 Year
  Sex: Female

DRUGS (10)
  1. FOLIC ACID. [Concomitant]
     Active Substance: FOLIC ACID
  2. CINGULAIR [Concomitant]
  3. MAGNESIUM [Concomitant]
     Active Substance: MAGNESIUM
  4. TEMAZEPAM 15MG MALLINCKRODT INC. [Suspect]
     Active Substance: TEMAZEPAM
     Indication: ANXIETY
     Dosage: 15 MG NIGHTLY ORAL
     Route: 048
     Dates: start: 20110928
  5. XOPENEX [Concomitant]
     Active Substance: LEVALBUTEROL HYDROCHLORIDE
  6. THYROID HORMONES [Concomitant]
     Active Substance: UNSPECIFIED INGREDIENT
  7. RIZATRIPTAN. [Concomitant]
     Active Substance: RIZATRIPTAN
  8. PONSTEL [Concomitant]
     Active Substance: MEFENAMIC ACID
  9. TIROSINT [Concomitant]
     Active Substance: LEVOTHYROXINE SODIUM
  10. CYTOMEL [Concomitant]
     Active Substance: LIOTHYRONINE SODIUM

REACTIONS (4)
  - Somnambulism [None]
  - Chest discomfort [None]
  - Confusional state [None]
  - Heart rate increased [None]

NARRATIVE: CASE EVENT DATE: 20110928
